FAERS Safety Report 6883441-2 (Version None)
Quarter: 2010Q3

REPORT INFORMATION
  Report Type: 
  Country: None (occurrence: None)
  Receive Date: 20100729
  Receipt Date: 20100719
  Transmission Date: 20110219
  Serious: Yes (Hospitalization)
  Sender: FDA-Public Use
  Company Number: GXKR2010US08003

PATIENT
  Age: 48 Year
  Sex: Male

DRUGS (6)
  1. ATENOLOL (NGX) [Suspect]
     Indication: HYPERTENSION
  2. METHYLPREDNISOLONE 4MG TAB [Suspect]
     Dosage: 30 MG/KG, UNK
  3. METHYLPREDNISOLONE 4MG TAB [Suspect]
     Dosage: 5.4 MG/KG/H
  4. IBUPROFEN TABLETS [Concomitant]
  5. FLUID/ELECTROLYTE REPLACEMENT THERAPY [Concomitant]
  6. PHENYLEPHRINE HCL [Concomitant]

REACTIONS (7)
  - GASTRITIS [None]
  - GASTROINTESTINAL HAEMORRHAGE [None]
  - HYPOTENSION [None]
  - LETHARGY [None]
  - PNEUMONIA [None]
  - SPINAL CORD INJURY CERVICAL [None]
  - TRACHEOSTOMY [None]
